FAERS Safety Report 9417060 (Version 2)
Quarter: 2013Q3

REPORT INFORMATION
  Report Type: Spontaneous
  Country: US (occurrence: None)
  Receive Date: 20130722
  Receipt Date: 20130729
  Transmission Date: 20140515
  Serious: Yes (Death, Hospitalization)
  Sender: FDA-Public Use
  Company Number: UTC-035562

PATIENT
  Age: 11 Month
  Sex: Female
  Weight: 6.8 kg

DRUGS (3)
  1. REMODULIN [Suspect]
     Indication: PULMONARY ARTERIAL HYPERTENSION
     Dosage: 46.08 UG/KG ( 0.032 UG/KG , 1 IN 1 MIN) INTRAVENOUS DRIP.
     Route: 041
     Dates: start: 20130529
  2. REVATIO (SLIDENAFIL CITRATE) [Concomitant]
  3. TRACLEER (BOSENTAN) [Concomitant]

REACTIONS (3)
  - Death [None]
  - Pneumonia [None]
  - Sepsis [None]
